FAERS Safety Report 8168484-3 (Version None)
Quarter: 2012Q1

REPORT INFORMATION
  Report Type: 
  Country: None (occurrence: None)
  Receive Date: 20120227
  Receipt Date: 20120227
  Transmission Date: 20120608
  Serious: Yes (Death)
  Sender: FDA-Public Use
  Company Number: None

PATIENT
  Age: 65 Year
  Sex: Female
  Weight: 65.77 kg

DRUGS (1)
  1. ORENCIA [Suspect]
     Indication: ARTHRITIS

REACTIONS (5)
  - UNEVALUABLE EVENT [None]
  - ADVERSE DRUG REACTION [None]
  - NAUSEA [None]
  - FEELING ABNORMAL [None]
  - ROAD TRAFFIC ACCIDENT [None]
